FAERS Safety Report 6644921-8 (Version None)
Quarter: 2010Q1

REPORT INFORMATION
  Report Type: 
  Country: None (occurrence: None)
  Receive Date: 20100322
  Receipt Date: 20100309
  Transmission Date: 20100710
  Serious: Yes (Other)
  Sender: FDA-Public Use
  Company Number: PHHY2010FI13991

PATIENT
  Sex: Male

DRUGS (1)
  1. ZOMETA [Suspect]
     Indication: PROSTATE CANCER
     Dosage: UNK
     Dates: start: 20050118, end: 20060929

REACTIONS (5)
  - BONE DISORDER [None]
  - DEBRIDEMENT [None]
  - JAW OPERATION [None]
  - OSTEOMYELITIS [None]
  - PAIN [None]
